FAERS Safety Report 11863814 (Version 2)
Quarter: 2018Q3

REPORT INFORMATION
  Report Type: Spontaneous
  Country: US (occurrence: US)
  Receive Date: 20151223
  Receipt Date: 20180821
  Transmission Date: 20181010
  Serious: Yes (Hospitalization, Other)
  Sender: FDA-Public Use
  Company Number: US-DSJP-DSU-2015-129546

PATIENT

DRUGS (3)
  1. BENICAR HCT [Suspect]
     Active Substance: HYDROCHLOROTHIAZIDE\OLMESARTAN MEDOXOMIL
     Indication: HYPERTENSION
     Dosage: 40 MG?12.5 MG,QD
     Route: 048
     Dates: start: 20121010, end: 201509
  2. BENICAR [Suspect]
     Active Substance: OLMESARTAN MEDOXOMIL
     Indication: HYPERTENSION
     Dosage: 20 MG, QD
     Route: 048
     Dates: start: 20091010, end: 20140212
  3. BENICAR [Suspect]
     Active Substance: OLMESARTAN MEDOXOMIL
     Dosage: 40 MG, QD
     Dates: start: 20140212, end: 20150804

REACTIONS (14)
  - Melaena [Unknown]
  - Hiatus hernia [Unknown]
  - Gastrooesophageal reflux disease [Not Recovered/Not Resolved]
  - Depression [Unknown]
  - Sprue-like enteropathy [Not Recovered/Not Resolved]
  - Anxiety [Unknown]
  - Faecaloma [Unknown]
  - Haematemesis [Unknown]
  - Diarrhoea infectious [Unknown]
  - Irritable bowel syndrome [Unknown]
  - Lipoma [Unknown]
  - Hepatic steatosis [Unknown]
  - Biliary dyskinesia [Unknown]
  - Diverticulitis [Unknown]

NARRATIVE: CASE EVENT DATE: 2011
